FAERS Safety Report 20962488 (Version 1)
Quarter: 2022Q2

REPORT INFORMATION
  Report Type: Spontaneous
  Country: US (occurrence: None)
  Receive Date: 20220615
  Receipt Date: 20220615
  Transmission Date: 20220721
  Serious: Yes (Life-Threatening)
  Sender: FDA-Public Use
  Company Number: None

PATIENT
  Age: 56 Year
  Sex: Female
  Weight: 96.3 kg

DRUGS (1)
  1. BUPROPION HYDROCHLORIDE [Suspect]
     Active Substance: BUPROPION HYDROCHLORIDE
     Indication: Anxiety
     Dosage: OTHER QUANTITY : 1 TABLET(S);?
     Route: 048
     Dates: start: 20220401, end: 20220610

REACTIONS (10)
  - Anger [None]
  - Self-injurious ideation [None]
  - Intentional self-injury [None]
  - Tremor [None]
  - Bruxism [None]
  - Tachycardia [None]
  - Influenza like illness [None]
  - Oropharyngeal pain [None]
  - Hyperhidrosis [None]
  - Aggression [None]

NARRATIVE: CASE EVENT DATE: 20220610
